FAERS Safety Report 4989297-7 (Version None)
Quarter: 2006Q2

REPORT INFORMATION
  Report Type: 
  Country: None (occurrence: None)
  Receive Date: 20060425
  Receipt Date: 20060410
  Transmission Date: 20061013
  Serious: Yes (Hospitalization, Other)
  Sender: FDA-Public Use
  Company Number: 2005151634

PATIENT
  Sex: Female

DRUGS (1)
  1. DILANTIN KAPSEAL [Suspect]
     Indication: CONVULSION
     Dosage: 400 MG (200 MG, 2 IN 12 HR), ORAL
     Route: 048

REACTIONS (6)
  - ANXIETY [None]
  - EMOTIONAL DISTRESS [None]
  - FEAR [None]
  - INJURY [None]
  - PAIN [None]
  - STEVENS-JOHNSON SYNDROME [None]
